FAERS Safety Report 13803898 (Version 1)
Quarter: 2017Q3

REPORT INFORMATION
  Report Type: Spontaneous
  Country: US (occurrence: US)
  Receive Date: 20170728
  Receipt Date: 20170728
  Transmission Date: 20171127
  Serious: No
  Sender: FDA-Public Use
  Company Number: US-ABBVIE-16P-163-1751076-00

PATIENT
  Age: 30 Year
  Sex: Female
  Weight: 61.29 kg

DRUGS (3)
  1. SYNTHROID [Suspect]
     Active Substance: LEVOTHYROXINE SODIUM
     Indication: HYPOTHYROIDISM
     Route: 065
  2. LEVOTHYROXINE. [Suspect]
     Active Substance: LEVOTHYROXINE
     Indication: HYPOTHYROIDISM
     Route: 065
  3. GABAPENTIN. [Concomitant]
     Active Substance: GABAPENTIN
     Indication: NERVOUSNESS
     Route: 065

REACTIONS (10)
  - Tri-iodothyronine decreased [Unknown]
  - Gait disturbance [Unknown]
  - Dysphagia [Unknown]
  - Irritability [Unknown]
  - Somnolence [Unknown]
  - Malaise [Unknown]
  - Headache [Unknown]
  - Fatigue [Unknown]
  - Drug level decreased [Unknown]
  - Pharyngeal oedema [Not Recovered/Not Resolved]

NARRATIVE: CASE EVENT DATE: 20160928
